FAERS Safety Report 12264889 (Version 1)
Quarter: 2016Q2

REPORT INFORMATION
  Report Type: Spontaneous
  Country: US (occurrence: US)
  Receive Date: 20160413
  Receipt Date: 20160413
  Transmission Date: 20160815
  Serious: No
  Sender: FDA-Public Use
  Company Number: US-JNJFOC-20160305409

PATIENT
  Age: 2 Year
  Sex: Male
  Weight: 17.24 kg

DRUGS (1)
  1. TYLENOL CHILDRENS SUSPENSION [Suspect]
     Active Substance: ACETAMINOPHEN
     Indication: PRODUCT USED FOR UNKNOWN INDICATION
     Dosage: 7.5MLS AT ABOUT 9:30 AM AND 7.5MLS AT 11:30AM
     Route: 048
     Dates: start: 20160303

REACTIONS (2)
  - Incorrect dose administered [Unknown]
  - Extra dose administered [Unknown]

NARRATIVE: CASE EVENT DATE: 20160303
